FAERS Safety Report 8377825-3 (Version None)
Quarter: 2012Q2

REPORT INFORMATION
  Report Type: 
  Country: None (occurrence: None)
  Receive Date: 20120522
  Receipt Date: 20120518
  Transmission Date: 20120825
  Serious: Yes (Death, Hospitalization)
  Sender: FDA-Public Use
  Company Number: US-B.I. PHARMACEUTICALS,INC./RIDGEFIELD-2012-BP-10889BP

PATIENT
  Age: 71 Year
  Sex: Male

DRUGS (7)
  1. METOPROLOL [Concomitant]
  2. AMIODARONE HCL [Concomitant]
  3. ZETIA [Concomitant]
  4. LIPITOR [Concomitant]
  5. PRADAXA [Suspect]
     Indication: CORONARY ARTERY BYPASS
  6. ASPIRIN [Concomitant]
  7. PRADAXA [Suspect]
     Indication: HEART VALVE REPLACEMENT

REACTIONS (1)
  - CEREBRAL HAEMORRHAGE [None]
